FAERS Safety Report 24563818 (Version 1)
Quarter: 2024Q4

REPORT INFORMATION
  Report Type: Spontaneous
  Country: US (occurrence: US)
  Receive Date: 20241030
  Receipt Date: 20241030
  Transmission Date: 20250115
  Serious: Yes (Other)
  Sender: APOTEX
  Company Number: US-APOTEX-2024AP017070

PATIENT
  Age: 81 Year
  Sex: Male

DRUGS (1)
  1. LEFLUNOMIDE [Suspect]
     Active Substance: LEFLUNOMIDE
     Indication: Rheumatoid arthritis
     Dosage: UNK
     Route: 065

REACTIONS (5)
  - Wound dehiscence [Recovering/Resolving]
  - Device extrusion [Recovering/Resolving]
  - Serratia infection [Recovering/Resolving]
  - Pseudomonas infection [Recovering/Resolving]
  - Enterococcal infection [Recovering/Resolving]
